FAERS Safety Report 11603895 (Version 3)
Quarter: 2015Q4

REPORT INFORMATION
  Report Type: Spontaneous
  Country: US (occurrence: US)
  Receive Date: 20151007
  Receipt Date: 20151014
  Transmission Date: 20160304
  Serious: Yes (Other)
  Sender: FDA-Public Use
  Company Number: US-TEVA-598031USA

PATIENT
  Age: 56 Year
  Sex: Male
  Weight: 113.5 kg

DRUGS (2)
  1. TREANDA [Suspect]
     Active Substance: BENDAMUSTINE HYDROCHLORIDE
     Indication: NON-HODGKIN^S LYMPHOMA
     Dosage: OVER 30 MINUTES
     Route: 042
     Dates: start: 201506
  2. RITUXAN [Concomitant]
     Active Substance: RITUXIMAB
     Indication: NON-HODGKIN^S LYMPHOMA
     Route: 065

REACTIONS (10)
  - Flushing [Unknown]
  - Pyrexia [Unknown]
  - Chest pain [Unknown]
  - Blood pressure increased [Unknown]
  - Infusion site pain [Unknown]
  - Incorrect drug administration rate [Unknown]
  - Hyperhidrosis [Unknown]
  - Incorrect route of drug administration [Unknown]
  - Off label use [Unknown]
  - Infusion site erythema [Unknown]

NARRATIVE: CASE EVENT DATE: 201506
